FAERS Safety Report 10084679 (Version 1)
Quarter: 2014Q2

REPORT INFORMATION
  Report Type: Report from Study
  Country: US (occurrence: US)
  Receive Date: 20140417
  Receipt Date: 20140417
  Transmission Date: 20141212
  Serious: Yes (Death, Hospitalization)
  Sender: FDA-Public Use
  Company Number: US-GLAXOSMITHKLINE-A1058870A

PATIENT
  Age: 57 Year
  Sex: Male

DRUGS (6)
  1. ZANAMIVIR [Suspect]
     Indication: H1N1 INFLUENZA
     Dosage: 600MG TWICE PER DAY
     Route: 042
     Dates: start: 20131224, end: 20131229
  2. TACROLIMUS [Suspect]
  3. PREDNISONE [Concomitant]
  4. POSACONAZOLE [Concomitant]
  5. SLIDING SCALE INSULIN [Concomitant]
  6. STEROID [Concomitant]

REACTIONS (5)
  - Hyperglycaemia [Fatal]
  - Graft versus host disease in gastrointestinal tract [Fatal]
  - Graft versus host disease in liver [Fatal]
  - Renal failure acute [Fatal]
  - Thrombocytopenia [Fatal]
